FAERS Safety Report 4645240-1 (Version None)
Quarter: 2005Q2

REPORT INFORMATION
  Report Type: 
  Country: None (occurrence: None)
  Receive Date: 20050426
  Receipt Date: 20050422
  Transmission Date: 20051028
  Serious: Yes (Other)
  Sender: FDA-Public Use
  Company Number: DE-GLAXOSMITHKLINE-D0046442A

PATIENT
  Sex: Female

DRUGS (1)
  1. RELENZA [Suspect]
     Indication: INFLUENZA LIKE ILLNESS
     Route: 065

REACTIONS (4)
  - ANAEMIA [None]
  - BONE MARROW DISORDER [None]
  - EXANTHEM [None]
  - HYPERSENSITIVITY [None]
